FAERS Safety Report 5980258-8 (Version None)
Quarter: 2008Q4

REPORT INFORMATION
  Report Type: 
  Country: None (occurrence: None)
  Receive Date: 20081205
  Receipt Date: 20081128
  Transmission Date: 20090506
  Serious: Yes (Other)
  Sender: FDA-Public Use
  Company Number: PHHY2008DK30242

PATIENT
  Sex: Female

DRUGS (1)
  1. LAMISIL [Suspect]
     Indication: NAIL CANDIDA
     Dosage: 250 MG/DAY
     Route: 048
     Dates: start: 20080724, end: 20080903

REACTIONS (2)
  - HEPATIC ENZYME ABNORMAL [None]
  - INFLUENZA LIKE ILLNESS [None]
